FAERS Safety Report 8758704 (Version 2)
Quarter: 2012Q4

REPORT INFORMATION
  Report Type: 
  Country: CN (occurrence: CN)
  Receive Date: 20120829
  Receipt Date: 20120920
  Transmission Date: 20130627
  Serious: Yes (Hospitalization, Other)
  Sender: FDA-Public Use
  Company Number: CN-NOVOPROD-357726

PATIENT
  Age: 25 Year
  Sex: Male
  Weight: 45 kg

DRUGS (2)
  1. NOVOLIN N PENFILL [Suspect]
     Indication: TYPE 1 DIABETES MELLITUS
     Dosage: 14 IU (morning) and 16 IU (evening)
     Route: 058
  2. NOVOLIN N PENFILL [Suspect]
     Dosage: UNK
     Route: 058

REACTIONS (3)
  - Nephropathy [Unknown]
  - Product quality issue [Recovered/Resolved]
  - Diabetes mellitus inadequate control [Recovered/Resolved]
